FAERS Safety Report 24241422 (Version 1)
Quarter: 2024Q3

REPORT INFORMATION
  Report Type: Other
  Country: GB (occurrence: GB)
  Receive Date: 20240823
  Receipt Date: 20240823
  Transmission Date: 20241017
  Serious: Yes (Hospitalization)
  Sender: ASPEN
  Company Number: None

PATIENT

DRUGS (6)
  1. DEXAMETHASONE [Suspect]
     Active Substance: DEXAMETHASONE
     Indication: Ataxia telangiectasia
     Dosage: 14-22 MG ONCE A MONTH
     Route: 065
     Dates: start: 20190206, end: 20240303
  2. Cetraben [Concomitant]
     Indication: Dry skin
     Dosage: UNK
     Route: 065
     Dates: start: 20240102
  3. FERROUS SULFATE [Concomitant]
     Active Substance: FERROUS SULFATE
     Indication: Serum ferritin decreased
     Dosage: UNK
     Route: 065
     Dates: start: 20240217, end: 20240327
  4. OMEPRAZOLE [Concomitant]
     Active Substance: OMEPRAZOLE
     Indication: Vomiting
     Dosage: UNK
     Route: 065
     Dates: start: 20240208, end: 20240403
  5. VITAMIN D [Concomitant]
     Active Substance: VITAMIN D NOS
     Indication: Prophylaxis
     Dosage: UNK
     Route: 065
     Dates: start: 20230801
  6. AMOXICILLIN\CLAVULANATE POTASSIUM [Concomitant]
     Active Substance: AMOXICILLIN\CLAVULANATE POTASSIUM
     Indication: Productive cough
     Dosage: UNK
     Route: 065
     Dates: start: 20240330, end: 20240403

REACTIONS (2)
  - Off label use [Unknown]
  - Vomiting [Recovered/Resolved with Sequelae]

NARRATIVE: CASE EVENT DATE: 20190206
